FAERS Safety Report 5732403-7 (Version None)
Quarter: 2008Q2

REPORT INFORMATION
  Report Type: 
  Country: None (occurrence: None)
  Receive Date: 20080508
  Receipt Date: 20080430
  Transmission Date: 20081010
  Serious: Yes (Other)
  Sender: FDA-Public Use
  Company Number: JP-PFIZER INC-2008038344

PATIENT
  Age: 13 Year
  Sex: Female

DRUGS (2)
  1. GENOTROPIN [Suspect]
     Dosage: DAILY DOSE:.8MG
     Route: 058
  2. ANTIEPILEPTICS [Concomitant]

REACTIONS (1)
  - EPILEPSY [None]
